FAERS Safety Report 18415347 (Version 1)
Quarter: 2020Q4

REPORT INFORMATION
  Report Type: Spontaneous
  Country: US (occurrence: US)
  Receive Date: 20201022
  Receipt Date: 20201022
  Transmission Date: 20210114
  Serious: Yes (Life-Threatening)
  Sender: FDA-Public Use
  Company Number: None

PATIENT
  Age: 87 Year
  Sex: Male
  Weight: 88 kg

DRUGS (10)
  1. ATORVASTATIN 20 MG DAILY [Concomitant]
     Active Substance: ATORVASTATIN
     Dates: start: 20201018, end: 20201021
  2. ENOXAPARIN 40MG DAILY [Concomitant]
     Dates: start: 20201017
  3. REMDESIVIR. [Suspect]
     Active Substance: REMDESIVIR
     Indication: COVID-19
     Route: 042
     Dates: start: 20201017, end: 20201021
  4. DEXAMETHASONE 6MG DAILY [Concomitant]
     Dates: start: 20201020
  5. AZITHROMYCIN 500MG DAILY [Concomitant]
     Active Substance: AZITHROMYCIN
     Dates: start: 20201018, end: 20201021
  6. TAMSULOSIN 0.4 MG DAILY [Concomitant]
     Dates: start: 20201018
  7. CLOPIDOGREL 75 MG DAILY [Concomitant]
     Dates: start: 20201018
  8. FINASTERIDE 5 MG DAILY [Concomitant]
     Dates: start: 20201018
  9. CEFTRIAXONE 1 GM DAILY [Concomitant]
     Dates: start: 20201017
  10. LEVOTHYROXINE  25 MCG DAILY [Concomitant]
     Dates: start: 20201018

REACTIONS (3)
  - Heart rate decreased [None]
  - Therapy cessation [None]
  - Ventricular extrasystoles [None]

NARRATIVE: CASE EVENT DATE: 20201021
